FAERS Safety Report 8720352 (Version 5)
Quarter: 2013Q4

REPORT INFORMATION
  Report Type: Report from Study
  Country: US (occurrence: US)
  Receive Date: 20120813
  Receipt Date: 20131007
  Transmission Date: 20140711
  Serious: Yes (Hospitalization)
  Sender: FDA-Public Use
  Company Number: US-VERTEX PHARMACEUTICAL INC.-AE-2012-011619

PATIENT
  Age: 55 Year
  Sex: Male
  Weight: 59.8 kg

DRUGS (20)
  1. VX-950 (TELAPREVIR) [Suspect]
     Indication: HEPATITIS C
     Dosage: 1125 MG, UNK
     Route: 048
     Dates: start: 20120713, end: 20120929
  2. Z-PEGYLATED INTERFERON-2A [Suspect]
     Indication: HEPATITIS C
     Dosage: 180 ?G, UNK
     Route: 058
     Dates: start: 20120713, end: 20120929
  3. Z-RIBAVIRIN [Suspect]
     Indication: HEPATITIS C
     Dosage: 800 MG, UNK
     Route: 048
     Dates: start: 20120713, end: 20120805
  4. Z-RIBAVIRIN [Suspect]
     Dosage: 600 UNK, UNK
     Route: 048
     Dates: start: 20120805, end: 20120929
  5. ATRIPLA [Concomitant]
     Indication: HIV INFECTION
     Dates: start: 20090617
  6. WELLBUTRIN XL [Concomitant]
     Indication: DEPRESSION
     Dates: start: 20120423, end: 20120727
  7. WELLBUTRIN XL [Concomitant]
     Dates: start: 20120727
  8. TEMAZEPAM [Concomitant]
     Indication: INSOMNIA
     Dates: start: 20100510
  9. BENADRYL [Concomitant]
     Indication: RASH
     Dates: start: 20120714
  10. IBUPROFEN [Concomitant]
     Indication: HEADACHE
     Dates: start: 20120713
  11. CLARITIN [Concomitant]
     Indication: RASH
     Dates: start: 20120724
  12. ALBUTEROL [Concomitant]
     Indication: WHEEZING
     Dates: start: 20120524
  13. ADVAIR [Concomitant]
     Indication: WHEEZING
     Dates: start: 20120524
  14. ONDANSETRON [Concomitant]
     Indication: NAUSEA
     Dosage: 4 MG, UNK
     Dates: start: 20120801
  15. DAPSONE [Concomitant]
     Dosage: 100 MG, UNK
     Dates: start: 20120822
  16. FLUTICASONE [Concomitant]
  17. DIPHENHYDRAMINE HYDROCHLORIDE [Concomitant]
  18. LORATADINE [Concomitant]
  19. SALBUTAMOL SULFATE [Concomitant]
  20. PRAVASTATIN SODIUM [Concomitant]

REACTIONS (2)
  - Syncope [Recovered/Resolved]
  - Anaemia [Recovered/Resolved]
